FAERS Safety Report 7707032-6 (Version None)
Quarter: 2011Q3

REPORT INFORMATION
  Report Type: 
  Country: None (occurrence: None)
  Receive Date: 20110818
  Receipt Date: 20110808
  Transmission Date: 20111222
  Serious: Yes (Hospitalization)
  Sender: FDA-Public Use
  Company Number: DSA_43953_2010

PATIENT
  Age: 37 Year
  Sex: Male

DRUGS (2)
  1. NICORANDIL [Concomitant]
  2. DILTIAZEM HCL [Suspect]
     Indication: SUICIDE ATTEMPT
     Dosage: (NOT THE PRESCRIBED AMOUNT ORAL)
     Route: 048

REACTIONS (13)
  - SHOCK [None]
  - ABDOMINAL PAIN [None]
  - RHYTHM IDIOVENTRICULAR [None]
  - RESTLESSNESS [None]
  - TOXICITY TO VARIOUS AGENTS [None]
  - HYPOXIA [None]
  - CONTINUOUS HAEMODIAFILTRATION [None]
  - DEPRESSED LEVEL OF CONSCIOUSNESS [None]
  - ELECTROCARDIOGRAM P WAVE ABNORMAL [None]
  - OLIGURIA [None]
  - RENAL FAILURE [None]
  - DIARRHOEA [None]
  - SINUS ARREST [None]
